FAERS Safety Report 9381998 (Version 2)
Quarter: 2013Q3

REPORT INFORMATION
  Report Type: Spontaneous
  Country: US (occurrence: US)
  Receive Date: 20130703
  Receipt Date: 20130813
  Transmission Date: 20140515
  Serious: Yes (Congenital Anomaly, Other)
  Sender: FDA-Public Use
  Company Number: US-PFIZER INC-2013196962

PATIENT
  Sex: Male

DRUGS (17)
  1. ZOLOFT [Suspect]
     Indication: ANXIETY
     Dosage: UNK
     Route: 064
     Dates: start: 20051220, end: 20060213
  2. ZOLOFT [Suspect]
     Indication: DEPRESSION
  3. ZOLOFT [Suspect]
     Indication: AFFECTIVE DISORDER
  4. SERTRALINE HCL [Suspect]
     Indication: ANXIETY
     Dosage: UNK
     Route: 064
     Dates: start: 20051220, end: 20060213
  5. SERTRALINE HCL [Suspect]
     Indication: DEPRESSION
  6. SERTRALINE HCL [Suspect]
     Indication: AFFECTIVE DISORDER
  7. TRINESSA [Concomitant]
     Dosage: UNK
     Route: 064
  8. ZITHROMAX [Concomitant]
     Dosage: UNK
     Route: 064
  9. METHYLPREDNISOLONE [Concomitant]
     Dosage: UNK
     Route: 064
  10. AMOX-CLAV [Concomitant]
     Dosage: UNK
     Route: 064
  11. DOXYCYCLINE [Concomitant]
     Dosage: UNK
     Route: 064
  12. PRENATAL PLUS [Concomitant]
     Dosage: UNK
     Route: 064
  13. TERCONAZOLE [Concomitant]
     Dosage: UNK
     Route: 064
  14. LORATADINE [Concomitant]
     Dosage: UNK
     Route: 064
  15. ACETAMINOPHEN [Concomitant]
     Dosage: UNK
     Route: 064
  16. AMOXICILLIN [Concomitant]
     Dosage: UNK
     Route: 064
  17. HYDROCODONE [Concomitant]
     Dosage: UNK
     Route: 064

REACTIONS (4)
  - Maternal exposure during pregnancy [Unknown]
  - Talipes [Unknown]
  - Congenital anomaly [Unknown]
  - Premature baby [Unknown]
